FAERS Safety Report 6444799-1 (Version None)
Quarter: 2009Q4

REPORT INFORMATION
  Report Type: 
  Country: None (occurrence: None)
  Receive Date: 20091118
  Receipt Date: 20091105
  Transmission Date: 20100525
  Serious: Yes (Other)
  Sender: FDA-Public Use
  Company Number: PHHY2009BR46780

PATIENT
  Sex: Female

DRUGS (5)
  1. DIOVAN HCT [Suspect]
     Dosage: 320/10 MG
  2. DIOVAN HCT [Suspect]
     Dosage: 160/25 MG
  3. ATENSINA [Concomitant]
     Dosage: IN THE MORNING AND AT NIGHT
  4. ALON [Concomitant]
     Dosage: IN THE MORNING
  5. RIVOTRIL [Concomitant]
     Dosage: AT NIGHT

REACTIONS (9)
  - EYE SWELLING [None]
  - GAIT DISTURBANCE [None]
  - GENERALISED OEDEMA [None]
  - HYPERTENSION [None]
  - JOINT SWELLING [None]
  - LIP SWELLING [None]
  - OEDEMA PERIPHERAL [None]
  - SENSATION OF HEAVINESS [None]
  - SWELLING FACE [None]
